FAERS Safety Report 24905720 (Version 3)
Quarter: 2025Q4

REPORT INFORMATION
  Report Type: Spontaneous
  Country: US (occurrence: US)
  Receive Date: 20250130
  Receipt Date: 20251014
  Transmission Date: 20260118
  Serious: Yes (Hospitalization)
  Sender: SAREPTA THERAPEUTICS
  Company Number: US-SAREPTA THERAPEUTICS INC.-SRP2025-005530

PATIENT
  Age: 12 Year
  Sex: Male
  Weight: 53.7 kg

DRUGS (2)
  1. EXONDYS 51 [Suspect]
     Active Substance: ETEPLIRSEN
     Indication: Duchenne muscular dystrophy
     Dosage: 1600 MILLIGRAM
     Route: 042
     Dates: start: 20170427, end: 20250111
  2. EXONDYS 51 [Suspect]
     Active Substance: ETEPLIRSEN
     Dosage: 1600 MILLIGRAM
     Route: 042
     Dates: start: 2025, end: 20250806

REACTIONS (1)
  - Pneumonia [Recovered/Resolved]

NARRATIVE: CASE EVENT DATE: 20250101
